FAERS Safety Report 5323767-7 (Version None)
Quarter: 2007Q2

REPORT INFORMATION
  Report Type: 
  Country: None (occurrence: None)
  Receive Date: 20070514
  Receipt Date: 20070501
  Transmission Date: 20071010
  Serious: Yes (Life-Threatening)
  Sender: FDA-Public Use
  Company Number: ID-AMGEN-US223702

PATIENT
  Age: 60 Year
  Sex: Male

DRUGS (7)
  1. NEULASTIM [Suspect]
     Indication: CHEMOTHERAPY
     Route: 058
     Dates: start: 20070426, end: 20070426
  2. MABTHERA [Concomitant]
     Indication: NON-HODGKIN'S LYMPHOMA
     Route: 042
     Dates: start: 20070425, end: 20070425
  3. CYCLOPHOSPHAMIDE [Concomitant]
     Indication: NON-HODGKIN'S LYMPHOMA
     Route: 042
  4. VINCRISTINE [Concomitant]
     Indication: NON-HODGKIN'S LYMPHOMA
     Route: 042
  5. DOXORUBICIN HYDROCHLORIDE [Concomitant]
     Indication: NON-HODGKIN'S LYMPHOMA
     Route: 042
  6. PREDNISONE TAB [Concomitant]
     Route: 048
     Dates: start: 20070421, end: 20070425
  7. RITUXIMAB [Concomitant]
     Route: 065
     Dates: start: 20070425, end: 20070425

REACTIONS (1)
  - SEPTIC SHOCK [None]
